FAERS Safety Report 7125841-1 (Version None)
Quarter: 2010Q4

REPORT INFORMATION
  Report Type: 
  Country: None (occurrence: None)
  Receive Date: 20101129
  Receipt Date: 20100310
  Transmission Date: 20110411
  Serious: Yes (Other)
  Sender: FDA-Public Use
  Company Number: US-MYLANLABS-2010S1004273

PATIENT
  Age: 56 Year
  Sex: Female

DRUGS (2)
  1. CLONAZEPAM [Suspect]
     Route: 048
  2. CLONAZEPAM [Suspect]
     Route: 048
     Dates: start: 20100309, end: 20100309

REACTIONS (2)
  - DRUG DEPENDENCE [None]
  - DRUG WITHDRAWAL SYNDROME [None]
